FAERS Safety Report 4421360-1 (Version None)
Quarter: 2004Q3

REPORT INFORMATION
  Report Type: 
  Country: None (occurrence: None)
  Receive Date: 20040706
  Receipt Date: 20040528
  Transmission Date: 20050211
  Serious: Yes (Life-Threatening, Hospitalization)
  Sender: FDA-Public Use
  Company Number: 236664

PATIENT
  Age: 48 Year
  Sex: Female

DRUGS (6)
  1. NOVOLOG [Suspect]
     Indication: DIABETES MELLITUS INSULIN-DEPENDENT
     Dosage: SLIDING SCALE, BID, SUBCUTANEOUS
     Route: 058
     Dates: start: 20030101, end: 20040101
  2. NOVOLOG [Suspect]
     Dosage: SLIDING SCALE, BID, SUBCUTANEOUS
     Route: 058
     Dates: start: 20040101
  3. LANTUS [Concomitant]
  4. PREDNISONE [Concomitant]
  5. ZOLOFT [Concomitant]
  6. LIPITOR [Concomitant]

REACTIONS (1)
  - BLOOD GLUCOSE INCREASED [None]
